FAERS Safety Report 5147762-6 (Version None)
Quarter: 2006Q4

REPORT INFORMATION
  Report Type: 
  Country: None (occurrence: None)
  Receive Date: 20061110
  Receipt Date: 20060928
  Transmission Date: 20070319
  Serious: Yes (Other)
  Sender: FDA-Public Use
  Company Number: PHEH2006US12313

PATIENT
  Age: 73 Year
  Sex: Female

DRUGS (3)
  1. LOPRESSOR [Suspect]
     Indication: HYPERTENSION
     Dosage: 1/2 A 50 MG TABLET BID
     Route: 048
     Dates: start: 20060925, end: 20060927
  2. VALIUM [Concomitant]
     Indication: ANXIETY
     Dosage: UNK, PRN
  3. CALCIUM [Concomitant]
     Indication: CERVICAL SPINAL STENOSIS

REACTIONS (4)
  - ABDOMINAL DISCOMFORT [None]
  - DEPRESSION [None]
  - FATIGUE [None]
  - NAUSEA [None]
